FAERS Safety Report 16707914 (Version 10)
Quarter: 2020Q2

REPORT INFORMATION
  Report Type: Report from Study
  Country: US (occurrence: US)
  Receive Date: 20190815
  Receipt Date: 20200505
  Transmission Date: 20200713
  Serious: Yes (Death, Hospitalization, Other)
  Sender: FDA-Public Use
  Company Number: US-ACTELION-A-NJ2019-188412

PATIENT
  Age: 56 Year
  Sex: Male
  Weight: 89.34 kg

DRUGS (8)
  1. UPTRAVI [Suspect]
     Active Substance: SELEXIPAG
     Dosage: 600 MCG, BID
     Route: 048
  2. UPTRAVI [Suspect]
     Active Substance: SELEXIPAG
     Dosage: 800 MCG, BID
     Route: 048
     Dates: start: 20190314
  3. OPSUMIT [Suspect]
     Active Substance: MACITENTAN
     Dosage: 10 MG, QD
     Route: 048
  4. WARFARIN [Concomitant]
     Active Substance: WARFARIN
  5. OPSUMIT [Suspect]
     Active Substance: MACITENTAN
     Indication: PULMONARY HYPERTENSION
     Dosage: 10 MG, QD
     Route: 048
  6. UPTRAVI [Suspect]
     Active Substance: SELEXIPAG
     Indication: PULMONARY HYPERTENSION
     Dosage: 400 MCG, BID
     Route: 048
  7. UPTRAVI [Suspect]
     Active Substance: SELEXIPAG
     Dosage: 300 MCG, BID
     Route: 048
  8. UPTRAVI [Suspect]
     Active Substance: SELEXIPAG
     Dosage: 1000 MCG, BID
     Route: 048
     Dates: start: 20190314

REACTIONS (30)
  - Headache [Unknown]
  - Weight decreased [Unknown]
  - Paracentesis [Not Recovered/Not Resolved]
  - Confusional state [Unknown]
  - Nausea [Recovering/Resolving]
  - Dyspnoea [Unknown]
  - Dizziness [Unknown]
  - Ascites [Recovered/Resolved]
  - Feeling abnormal [Recovered/Resolved]
  - Constipation [Recovered/Resolved]
  - Inguinal hernia [Unknown]
  - Eating disorder [Recovering/Resolving]
  - Rash [Unknown]
  - Hepatic cirrhosis [Unknown]
  - Disease complication [Unknown]
  - Influenza like illness [Unknown]
  - Malaise [Unknown]
  - Intentional product misuse [Unknown]
  - Renal disorder [Unknown]
  - Diarrhoea [Unknown]
  - Abdominal distension [Recovering/Resolving]
  - Mobility decreased [Recovering/Resolving]
  - Abdominal discomfort [Unknown]
  - Respiratory failure [Fatal]
  - Liver disorder [Unknown]
  - Feeling hot [Unknown]
  - Pyrexia [Unknown]
  - Chills [Unknown]
  - Fatigue [Recovered/Resolved]
  - Insomnia [Recovering/Resolving]

NARRATIVE: CASE EVENT DATE: 20190314
